FAERS Safety Report 8951166 (Version 1)
Quarter: 2012Q4

REPORT INFORMATION
  Report Type: 
  Country: US (occurrence: US)
  Receive Date: 20121207
  Receipt Date: 20121207
  Transmission Date: 20130627
  Serious: Yes (Other)
  Sender: FDA-Public Use
  Company Number: US-PFIZER INC-2012307318

PATIENT
  Age: 32 Year
  Sex: Female
  Weight: 141 kg

DRUGS (17)
  1. LIPITOR [Suspect]
     Indication: HIGH CHOLESTEROL
     Dosage: UNK
     Dates: start: 2012, end: 2012
  2. SPIRIVA [Suspect]
     Indication: CHRONIC OBSTRUCTIVE PULMONARY DISEASE
     Dosage: 18 ug, 1x/day
     Dates: start: 201205
  3. PROVENTIL HFA [Concomitant]
     Dosage: UNK
  4. ATROVENT HFA [Concomitant]
     Dosage: UNK
  5. SINGULAIR [Concomitant]
     Dosage: 3 mg, 1x/day
  6. ORTHO MICRONOR [Concomitant]
     Dosage: 0.35 mg, 1x/day
  7. BENADRYL [Concomitant]
     Dosage: 25 mg, as needed
  8. RANITIDINE [Concomitant]
     Dosage: 150 mg, 1x/day
  9. GLIPIZIDE [Concomitant]
     Dosage: 2 mg, UNK
  10. NAPROSYN [Concomitant]
     Dosage: 220 mg, as needed
  11. CLONAZEPAM [Concomitant]
     Dosage: 2 mg, 3x/day
  12. METFORMIN [Concomitant]
     Dosage: 1000 mg, 2x/day
  13. LISINOPRIL [Concomitant]
     Dosage: 20 mg, 2x/day
  14. ASPIRIN [Concomitant]
     Dosage: 81 mg, UNK
  15. DICYCLOMINE [Concomitant]
     Dosage: UNK, 1x/day
  16. SIMVASTATIN [Concomitant]
     Dosage: UNK
  17. MULTIVITAMINS [Concomitant]
     Dosage: UNK

REACTIONS (7)
  - Convulsion [Unknown]
  - Mental impairment [Unknown]
  - Memory impairment [Unknown]
  - Drug hypersensitivity [Unknown]
  - Swollen tongue [Unknown]
  - Oedema mouth [Unknown]
  - Influenza [Not Recovered/Not Resolved]
